FAERS Safety Report 19417998 (Version 1)
Quarter: 2021Q2

REPORT INFORMATION
  Report Type: Other
  Country: US (occurrence: US)
  Receive Date: 20210615
  Receipt Date: 20210615
  Transmission Date: 20210717
  Serious: Yes (Hospitalization, Disabling, Other)
  Sender: FDA-Public Use
  Company Number: US-ROCHE-2119797

PATIENT
  Age: 83 Year
  Sex: Female
  Weight: 78.54 kg

DRUGS (21)
  1. ESBRIET [Suspect]
     Active Substance: PIRFENIDONE
     Route: 048
  2. CLOPIDOGREL [Concomitant]
     Active Substance: CLOPIDOGREL BISULFATE
     Route: 048
  3. CALCIUM [Concomitant]
     Active Substance: CALCIUM
  4. LEVOTHYROXINE. [Concomitant]
     Active Substance: LEVOTHYROXINE
     Route: 048
  5. SERTRALINE [Concomitant]
     Active Substance: SERTRALINE HYDROCHLORIDE
     Route: 048
  6. ATENOLOL. [Concomitant]
     Active Substance: ATENOLOL
     Route: 048
  7. PANTOPRAZOLE [Concomitant]
     Active Substance: PANTOPRAZOLE
     Dosage: 1 PILL TWICE DAILY,
     Route: 048
  8. ESBRIET [Suspect]
     Active Substance: PIRFENIDONE
     Dosage: DOSE BEFORE STOPPING MEDICATION: UNKNOWN
     Route: 048
     Dates: start: 201806, end: 201806
  9. ESBRIET [Suspect]
     Active Substance: PIRFENIDONE
     Route: 048
     Dates: start: 20180701
  10. MAGNESIUM [Concomitant]
     Active Substance: MAGNESIUM
  11. ESBRIET [Suspect]
     Active Substance: PIRFENIDONE
     Dosage: TAKE 2 TABLET(S) BY MOUTH (534 MG) 3 TIMES A DAY WITH FOOD
     Route: 048
  12. ZYRTEC (UNITED STATES) [Concomitant]
     Route: 048
  13. ESBRIET [Suspect]
     Active Substance: PIRFENIDONE
     Dosage: TAKE 2 TABLET(S) BY MOUTH TWICE DAILY
     Route: 048
  14. FUROSEMIDE. [Concomitant]
     Active Substance: FUROSEMIDE
     Dosage: 2 PILLS TWICE DAILY
     Route: 048
  15. ASPIRIN. [Concomitant]
     Active Substance: ASPIRIN
     Route: 048
  16. NAMENDA [Concomitant]
     Active Substance: MEMANTINE HYDROCHLORIDE
     Dosage: 1 PILL; TWICE DAILY
     Route: 048
  17. ESBRIET [Suspect]
     Active Substance: PIRFENIDONE
     Indication: IDIOPATHIC PULMONARY FIBROSIS
     Dosage: EIGHT HOURS APART ;ONGOING: NO
     Route: 048
     Dates: start: 20180404, end: 20180510
  18. OXYBUTYNIN. [Concomitant]
     Active Substance: OXYBUTYNIN CHLORIDE
     Route: 048
  19. SIMVASTATIN. [Concomitant]
     Active Substance: SIMVASTATIN
     Route: 048
  20. GABAPENTIN. [Concomitant]
     Active Substance: GABAPENTIN
     Route: 048
  21. IRON [Concomitant]
     Active Substance: IRON

REACTIONS (23)
  - Body temperature increased [Recovered/Resolved]
  - Fatigue [Not Recovered/Not Resolved]
  - Weight fluctuation [Unknown]
  - Overweight [Not Recovered/Not Resolved]
  - Decreased appetite [Not Recovered/Not Resolved]
  - Cough [Not Recovered/Not Resolved]
  - Hypoaesthesia [Unknown]
  - Diarrhoea [Unknown]
  - Off label use [Unknown]
  - Dizziness [Not Recovered/Not Resolved]
  - Anaemia [Not Recovered/Not Resolved]
  - Cerebral disorder [Not Recovered/Not Resolved]
  - Confusional state [Not Recovered/Not Resolved]
  - Urinary tract infection [Unknown]
  - Nephropathy [Not Recovered/Not Resolved]
  - Amnesia [Unknown]
  - Gastric disorder [Unknown]
  - Sinus disorder [Unknown]
  - Bacterial food poisoning [Unknown]
  - Rotator cuff syndrome [Not Recovered/Not Resolved]
  - Kidney infection [Unknown]
  - Sleep apnoea syndrome [Not Recovered/Not Resolved]
  - Dehydration [Unknown]

NARRATIVE: CASE EVENT DATE: 20180410
